FAERS Safety Report 9178746 (Version 1)
Quarter: 2013Q1

REPORT INFORMATION
  Report Type: Spontaneous
  Country: US (occurrence: US)
  Receive Date: 20130321
  Receipt Date: 20130321
  Transmission Date: 20140127
  Serious: Yes (Other)
  Sender: FDA-Public Use
  Company Number: US-PFIZER INC-2013092017

PATIENT
  Age: 54 Year
  Sex: Female
  Weight: 66 kg

DRUGS (2)
  1. NEURONTIN [Suspect]
     Indication: NECK PAIN
     Dosage: 1200 MG, 3X/DAY
     Route: 048
     Dates: start: 2010, end: 20121126
  2. PERCOCET [Concomitant]
     Indication: NECK PAIN
     Dosage: UNK

REACTIONS (3)
  - Accident [Unknown]
  - Neck injury [Not Recovered/Not Resolved]
  - Pain [Not Recovered/Not Resolved]
